FAERS Safety Report 10806912 (Version 1)
Quarter: 2015Q1

REPORT INFORMATION
  Report Type: Report from Study
  Country: US (occurrence: US)
  Receive Date: 20150217
  Receipt Date: 20150217
  Transmission Date: 20150721
  Serious: No
  Sender: FDA-Public Use
  Company Number: US-ABBVIE-14K-163-1247519-00

PATIENT
  Age: 35 Year
  Sex: Male

DRUGS (4)
  1. HUMIRA [Suspect]
     Active Substance: ADALIMUMAB
     Indication: CROHN^S DISEASE
     Dates: start: 20140327
  2. ADDERALL [Concomitant]
     Active Substance: AMPHETAMINE ASPARTATE\AMPHETAMINE SULFATE\DEXTROAMPHETAMINE SACCHARATE\DEXTROAMPHETAMINE SULFATE
     Indication: ATTENTION DEFICIT/HYPERACTIVITY DISORDER
  3. ADDERALL [Concomitant]
     Active Substance: AMPHETAMINE ASPARTATE\AMPHETAMINE SULFATE\DEXTROAMPHETAMINE SACCHARATE\DEXTROAMPHETAMINE SULFATE
     Indication: ARTHRITIS
     Dosage: 7.5/325 MG UP TO FOUR TIMES PER DAY
  4. ZITHROMAX [Concomitant]
     Active Substance: AZITHROMYCIN DIHYDRATE
     Indication: CROHN^S DISEASE

REACTIONS (9)
  - Fatigue [Unknown]
  - Renal pain [Recovering/Resolving]
  - Crohn^s disease [Recovered/Resolved]
  - Peripheral swelling [Not Recovered/Not Resolved]
  - Gait disturbance [Not Recovered/Not Resolved]
  - Nodule [Recovered/Resolved]
  - Pain [Recovering/Resolving]
  - Joint swelling [Not Recovered/Not Resolved]
  - Drug ineffective [Unknown]

NARRATIVE: CASE EVENT DATE: 2014
